FAERS Safety Report 7528103-3 (Version None)
Quarter: 2011Q2

REPORT INFORMATION
  Report Type: 
  Country: None (occurrence: None)
  Receive Date: 20110607
  Receipt Date: 20110524
  Transmission Date: 20111010
  Serious: Yes (Hospitalization, Other)
  Sender: FDA-Public Use
  Company Number: DE-ELI_LILLY_AND_COMPANY-DE201105006617

PATIENT
  Sex: Female

DRUGS (4)
  1. FORTEO [Suspect]
     Indication: OSTEOPOROSIS
     Dosage: UNK, QD
     Route: 058
     Dates: start: 20100210
  2. AMLODIPINE BESYLATE [Concomitant]
     Dosage: UNK, UNKNOWN
     Route: 065
  3. CALCIUM + VITAMIN D [Concomitant]
     Dosage: UNK, UNKNOWN
     Route: 065
  4. ROCORNAL [Concomitant]
     Dosage: UNK, UNKNOWN
     Route: 065

REACTIONS (4)
  - GASTRIC CANCER [None]
  - CARDIAC PACEMAKER INSERTION [None]
  - DIZZINESS [None]
  - FAECES DISCOLOURED [None]
